FAERS Safety Report 19552297 (Version 1)
Quarter: 2021Q3

REPORT INFORMATION
  Report Type: Spontaneous
  Country: US (occurrence: US)
  Receive Date: 20210715
  Receipt Date: 20210715
  Transmission Date: 20211014
  Serious: Yes (Other)
  Sender: FDA-Public Use
  Company Number: US-SA-2021SA229234

PATIENT
  Age: 51 Year
  Sex: Female

DRUGS (1)
  1. ZANTAC [Suspect]
     Active Substance: RANITIDINE HYDROCHLORIDE
     Indication: DYSPEPSIA
     Dosage: UNK, QD
     Dates: start: 199701, end: 199701

REACTIONS (7)
  - Disease progression [Not Recovered/Not Resolved]
  - Abdominal neoplasm [Unknown]
  - Lymphoma [Unknown]
  - Uterine cancer [Not Recovered/Not Resolved]
  - Cervix carcinoma stage III [Unknown]
  - Gastrointestinal carcinoma [Unknown]
  - Colorectal cancer stage IV [Unknown]

NARRATIVE: CASE EVENT DATE: 20150101
